FAERS Safety Report 17847364 (Version 8)
Quarter: 2022Q1

REPORT INFORMATION
  Report Type: Other
  Country: DE (occurrence: None)
  Receive Date: 20200601
  Receipt Date: 20220211
  Transmission Date: 20220423
  Serious: Yes (Hospitalization, Other)
  Sender: FDA-Public Use
  Company Number: DE-ROCHE-2577243

PATIENT
  Age: 51 Year
  Sex: Female
  Weight: 125 kg

DRUGS (6)
  1. OCREVUS [Suspect]
     Active Substance: OCRELIZUMAB
     Indication: Secondary progressive multiple sclerosis
     Route: 042
     Dates: start: 20190723, end: 20200608
  2. GABAPENTIN [Concomitant]
     Active Substance: GABAPENTIN
     Dosage: 900MG - 1500MG
     Dates: end: 202009
  3. TIZANIDINE [Concomitant]
     Active Substance: TIZANIDINE
  4. DICLOFENAC [Concomitant]
     Active Substance: DICLOFENAC
  5. PREGABALIN [Concomitant]
     Active Substance: PREGABALIN
     Dosage: 1-1-1
  6. LETROZOLE [Concomitant]
     Active Substance: LETROZOLE
     Dosage: 0-0-1

REACTIONS (12)
  - Herpes zoster [Recovered/Resolved]
  - Breast cancer metastatic [Recovered/Resolved]
  - Off label use [Unknown]
  - Weight increased [Recovering/Resolving]
  - Gait disturbance [Recovering/Resolving]
  - Balance disorder [Recovering/Resolving]
  - Drug ineffective [Unknown]
  - Polyneuropathy [Recovering/Resolving]
  - Skin exfoliation [Recovered/Resolved]
  - Pain [Recovered/Resolved]
  - Haemorrhage [Recovered/Resolved]
  - Lymphoedema [Recovered/Resolved]

NARRATIVE: CASE EVENT DATE: 20190723
